FAERS Safety Report 18549004 (Version 4)
Quarter: 2021Q4

REPORT INFORMATION
  Report Type: Spontaneous
  Country: JP (occurrence: JP)
  Receive Date: 20201126
  Receipt Date: 20211004
  Transmission Date: 20220303
  Serious: Yes (Other)
  Sender: FDA-Public Use
  Company Number: JP-AMGEN-JPNSP2020155644

PATIENT
  Age: 3 Year
  Sex: Male

DRUGS (3)
  1. BLINCYTO [Suspect]
     Active Substance: BLINATUMOMAB
     Indication: B precursor type acute leukaemia
     Dosage: 5 MICROGRAM/SQ. METER, QD, FOR THE FIRST 7 DAYS
     Route: 042
     Dates: start: 20200917, end: 20201004
  2. BLINCYTO [Suspect]
     Active Substance: BLINATUMOMAB
     Dosage: 15 MICROGRAM/SQ. METER, QD, FOR THE FOLLOWING 16 DAYS
     Route: 042
     Dates: start: 20200917, end: 20201004
  3. CYCLOPHOSPHAMIDE [Concomitant]
     Active Substance: CYCLOPHOSPHAMIDE

REACTIONS (5)
  - CSF cell count abnormal [Recovered/Resolved]
  - Acute lymphocytic leukaemia recurrent [Unknown]
  - Infusion site haemorrhage [Recovered/Resolved]
  - Pyrexia [Unknown]
  - Minimal residual disease [Not Recovered/Not Resolved]

NARRATIVE: CASE EVENT DATE: 20200101
